FAERS Safety Report 8489840-X (Version None)
Quarter: 2012Q3

REPORT INFORMATION
  Report Type: 
  Country: None (occurrence: None)
  Receive Date: 20120705
  Receipt Date: 20120626
  Transmission Date: 20120928
  Serious: Yes (Disabling)
  Sender: FDA-Public Use
  Company Number: US-ACTELION-A-NJ2012-67472

PATIENT

DRUGS (8)
  1. IMURAN [Concomitant]
  2. CALCIUM CHANNEL BLOCKERS [Concomitant]
  3. PREDNISONE [Concomitant]
  4. OMEPRAZOLE [Concomitant]
  5. ZOLOFT [Concomitant]
  6. PRAVACHOL [Concomitant]
  7. ASPIRIN [Concomitant]
  8. TRACLEER [Suspect]
     Indication: PULMONARY ARTERIAL HYPERTENSION
     Dosage: UNK
     Route: 048
     Dates: start: 20120521, end: 20120601

REACTIONS (2)
  - DECREASED APPETITE [None]
  - NAUSEA [None]
